FAERS Safety Report 23801016 (Version 2)
Quarter: 2024Q2

REPORT INFORMATION
  Report Type: Spontaneous
  Country: CL (occurrence: CL)
  Receive Date: 20240430
  Receipt Date: 20240521
  Transmission Date: 20240716
  Serious: Yes (Other)
  Sender: FDA-Public Use
  Company Number: CL-BAYER-2024A063818

PATIENT
  Age: 71 Year
  Sex: Male

DRUGS (12)
  1. NUBEQA [Suspect]
     Active Substance: DAROLUTAMIDE
     Indication: Hormone-dependent prostate cancer
     Dosage: UNK
     Dates: start: 202401
  2. NUBEQA [Suspect]
     Active Substance: DAROLUTAMIDE
     Indication: Hormone-dependent prostate cancer
     Dosage: UNK
     Dates: start: 202312
  3. DOCETAXEL [Suspect]
     Active Substance: DOCETAXEL\DOCETAXEL ANHYDROUS
     Indication: Hormone-dependent prostate cancer
     Dosage: UNK
     Dates: start: 202401, end: 202401
  4. DOCETAXEL [Suspect]
     Active Substance: DOCETAXEL\DOCETAXEL ANHYDROUS
     Indication: Hormone-dependent prostate cancer
     Dosage: UNK
  5. DOCETAXEL [Suspect]
     Active Substance: DOCETAXEL\DOCETAXEL ANHYDROUS
     Indication: Hormone-dependent prostate cancer
     Dosage: UNK
  6. DOCETAXEL [Suspect]
     Active Substance: DOCETAXEL\DOCETAXEL ANHYDROUS
     Indication: Hormone-dependent prostate cancer
     Dosage: UNK
  7. DOCETAXEL [Suspect]
     Active Substance: DOCETAXEL\DOCETAXEL ANHYDROUS
     Indication: Hormone-dependent prostate cancer
     Dosage: UNK
     Dates: start: 202404, end: 202404
  8. DEGARELIX [Concomitant]
     Active Substance: DEGARELIX
     Indication: Hormone-dependent prostate cancer
     Dosage: UNK
     Dates: start: 202401
  9. LEVOTHYROXINE [Concomitant]
     Active Substance: LEVOTHYROXINE\LEVOTHYROXINE SODIUM
     Dosage: UNK
  10. LOSARTAN [Concomitant]
     Active Substance: LOSARTAN
     Dosage: UNK
  11. AMLODIPINE [Concomitant]
     Active Substance: AMLODIPINE BESYLATE
     Dosage: UNK
  12. ROSUVASTATIN [Concomitant]
     Active Substance: ROSUVASTATIN
     Dosage: UNK

REACTIONS (4)
  - Neuropathy peripheral [Not Recovered/Not Resolved]
  - Alopecia [Recovering/Resolving]
  - Diarrhoea [Recovered/Resolved]
  - Dysgeusia [Not Recovered/Not Resolved]
